FAERS Safety Report 4738373-2 (Version None)
Quarter: 2005Q3

REPORT INFORMATION
  Report Type: 
  Country: None (occurrence: None)
  Receive Date: 20050809
  Receipt Date: 20050720
  Transmission Date: 20060218
  Serious: Yes (Hospitalization)
  Sender: FDA-Public Use
  Company Number: US-GLAXOSMITHKLINE-A0567054A

PATIENT
  Age: 24 Year
  Sex: Female
  Weight: 56.8 kg

DRUGS (1)
  1. VALTREX [Suspect]
     Indication: HERPES SIMPLEX
     Route: 048
     Dates: end: 20050614

REACTIONS (16)
  - ABDOMINAL DISCOMFORT [None]
  - AMNESIA [None]
  - ANXIETY [None]
  - BRUXISM [None]
  - CALCINOSIS [None]
  - CONFUSIONAL STATE [None]
  - CONVULSION [None]
  - DIZZINESS [None]
  - GRANULOMA [None]
  - MENINGIOMA [None]
  - MOANING [None]
  - MUSCULOSKELETAL STIFFNESS [None]
  - POSTICTAL STATE [None]
  - STARING [None]
  - TONGUE BITING [None]
  - TREMOR [None]
